FAERS Safety Report 25514624 (Version 1)
Quarter: 2025Q3

REPORT INFORMATION
  Report Type: Spontaneous
  Country: US (occurrence: US)
  Receive Date: 20250703
  Receipt Date: 20250703
  Transmission Date: 20251021
  Serious: No
  Sender: RADIUS PHARM
  Company Number: US-RADIUS HEALTH INC.-2025US000537

PATIENT
  Age: 68 Year
  Sex: Female

DRUGS (1)
  1. TYMLOS [Suspect]
     Active Substance: ABALOPARATIDE
     Indication: Senile osteoporosis
     Route: 058
     Dates: start: 202403

REACTIONS (5)
  - Limb discomfort [Unknown]
  - Gait disturbance [Unknown]
  - Insomnia [Unknown]
  - Hypoaesthesia [Unknown]
  - Neuralgia [Unknown]

NARRATIVE: CASE EVENT DATE: 20241101
